FAERS Safety Report 9462301 (Version 2)
Quarter: 2013Q3

REPORT INFORMATION
  Report Type: Spontaneous
  Country: FR (occurrence: FR)
  Receive Date: 20130816
  Receipt Date: 20130830
  Transmission Date: 20140515
  Serious: Yes (Other)
  Sender: FDA-Public Use
  Company Number: FR-BAYER-2013-096619

PATIENT
  Age: 84 Year
  Sex: Female

DRUGS (2)
  1. ASPIRINE PROTECT [Suspect]
     Indication: PAIN
     Dosage: UNK
  2. ASPRO 500 EFFERVESCENT [Suspect]
     Indication: PAIN
     Dosage: UNK

REACTIONS (5)
  - Flatulence [None]
  - Dyspepsia [None]
  - Abdominal pain [None]
  - Infection [None]
  - Wrong technique in drug usage process [None]
